FAERS Safety Report 7362959-2 (Version None)
Quarter: 2011Q1

REPORT INFORMATION
  Report Type: 
  Country: None (occurrence: None)
  Receive Date: 20110321
  Receipt Date: 20080111
  Transmission Date: 20110831
  Serious: No
  Sender: FDA-Public Use
  Company Number: 2008BI001315

PATIENT
  Age: 31 Year
  Sex: Female

DRUGS (3)
  1. TYSABRI [Suspect]
     Indication: MULTIPLE SCLEROSIS
     Route: 042
     Dates: start: 20071213, end: 20081212
  2. BENADRYL [Concomitant]
     Indication: PREMEDICATION
  3. AVONEX [Concomitant]
     Indication: MULTIPLE SCLEROSIS
     Route: 030
     Dates: start: 20070323

REACTIONS (1)
  - INFUSION RELATED REACTION [None]
